FAERS Safety Report 15323722 (Version 1)
Quarter: 2018Q3

REPORT INFORMATION
  Report Type: Spontaneous
  Country: US (occurrence: US)
  Receive Date: 20180828
  Receipt Date: 20180828
  Transmission Date: 20181010
  Serious: Yes (Other)
  Sender: FDA-Public Use
  Company Number: US-BEH-2018094271

PATIENT
  Age: 16 Year
  Sex: Male

DRUGS (2)
  1. HUMATE?P [Suspect]
     Active Substance: HUMAN COAGULATION FACTOR VIII/VON WILLEBRAND FACTOR COMPLEX
     Indication: FACTOR VIII DEFICIENCY
     Dosage: 2500 IU, M, W, F AND DAILY PRN MINOR BLEEDS
     Route: 042
     Dates: start: 20131230
  2. HUMATE?P [Suspect]
     Active Substance: HUMAN COAGULATION FACTOR VIII/VON WILLEBRAND FACTOR COMPLEX
     Dosage: 4800 IU, QD
     Route: 042
     Dates: start: 20131230

REACTIONS (1)
  - Haemarthrosis [Unknown]
